FAERS Safety Report 15640984 (Version 2)
Quarter: 2018Q4

REPORT INFORMATION
  Report Type: Report from Study
  Country: CA (occurrence: CA)
  Receive Date: 20181120
  Receipt Date: 20181203
  Transmission Date: 20190205
  Serious: Yes (Death, Hospitalization, Other)
  Sender: FDA-Public Use
  Company Number: CA-BAYER-2018-078996

PATIENT
  Age: 60 Year
  Sex: Male

DRUGS (4)
  1. ARA-C [Concomitant]
     Active Substance: CYTARABINE
     Dosage: UNK
  2. ARA-C [Concomitant]
     Active Substance: CYTARABINE
     Dosage: UNK
  3. IDARUBICIN [Concomitant]
     Active Substance: IDARUBICIN
  4. NEXAVAR [Suspect]
     Active Substance: SORAFENIB
     Indication: ACUTE MYELOID LEUKAEMIA
     Dosage: 400 MG, QD
     Route: 048

REACTIONS (8)
  - Death [Fatal]
  - Hospitalisation [None]
  - Folliculitis [Not Recovered/Not Resolved]
  - Product use in unapproved indication [None]
  - Off label use [None]
  - Skin discolouration [Not Recovered/Not Resolved]
  - Acne [Not Recovered/Not Resolved]
  - Melanocytic naevus [None]

NARRATIVE: CASE EVENT DATE: 20180905
